FAERS Safety Report 6476177-3 (Version None)
Quarter: 2009Q4

REPORT INFORMATION
  Report Type: 
  Country: None (occurrence: None)
  Receive Date: 20091204
  Receipt Date: 20091125
  Transmission Date: 20100525
  Serious: Yes (Other)
  Sender: FDA-Public Use
  Company Number: IL-AMGEN-UK377979

PATIENT
  Age: 86 Year
  Sex: Female

DRUGS (6)
  1. NEULASTIM [Suspect]
     Indication: CHEMOTHERAPY
     Route: 058
     Dates: start: 20091001
  2. RITUXIMAB [Concomitant]
     Dates: start: 20091028
  3. CYCLOPHOSPHAMIDE [Concomitant]
     Dates: start: 20091029
  4. VINCRISTINE [Concomitant]
     Dates: start: 20091029
  5. DAUNORUBICIN HCL [Concomitant]
     Dates: start: 20091029
  6. PREDNISONE [Concomitant]
     Dates: start: 20091029

REACTIONS (3)
  - LEUKOCYTOSIS [None]
  - THROMBOCYTOPENIA [None]
  - THROMBOCYTOSIS [None]
